FAERS Safety Report 7268816-4 (Version None)
Quarter: 2011Q1

REPORT INFORMATION
  Report Type: 
  Country: None (occurrence: None)
  Receive Date: 20110201
  Receipt Date: 20110127
  Transmission Date: 20110831
  Serious: Yes (Life-Threatening)
  Sender: FDA-Public Use
  Company Number: FR-ASTRAZENECA-2010SE29238

PATIENT
  Sex: Female

DRUGS (3)
  1. SUFENTA PRESERVATIVE FREE [Suspect]
     Indication: ANAESTHESIA
     Route: 042
     Dates: start: 20100528, end: 20100528
  2. SUCCINYLCHOLINE CHLORIDE [Suspect]
     Indication: ANAESTHESIA
     Route: 042
     Dates: start: 20100528, end: 20100528
  3. DIPRIVAN [Suspect]
     Indication: ANAESTHESIA
     Route: 042
     Dates: start: 20100528, end: 20100528

REACTIONS (2)
  - CIRCULATORY COLLAPSE [None]
  - BRONCHOSPASM [None]
